FAERS Safety Report 6359906-9 (Version None)
Quarter: 2009Q3

REPORT INFORMATION
  Report Type: 
  Country: None (occurrence: None)
  Receive Date: 20090917
  Receipt Date: 20080828
  Transmission Date: 20100115
  Serious: Yes (Hospitalization)
  Sender: FDA-Public Use
  Company Number: US-BRISTOL-MYERS SQUIBB COMPANY-14327944

PATIENT
  Age: 8 Decade
  Sex: Female

DRUGS (2)
  1. MEGESTROL ACETATE [Suspect]
     Indication: WEIGHT DECREASED
     Route: 048
  2. MEGESTROL ACETATE [Suspect]
     Indication: DECREASED APPETITE
     Route: 048

REACTIONS (1)
  - DEEP VEIN THROMBOSIS [None]
